FAERS Safety Report 6041140-3 (Version None)
Quarter: 2009Q1

REPORT INFORMATION
  Report Type: 
  Country: None (occurrence: None)
  Receive Date: 20090116
  Receipt Date: 20080902
  Transmission Date: 20090719
  Serious: No
  Sender: FDA-Public Use
  Company Number: US-BRISTOL-MYERS SQUIBB COMPANY-14322911

PATIENT
  Age: 20 Year
  Sex: Female

DRUGS (2)
  1. ABILIFY [Suspect]
     Indication: SCHIZOPHRENIA
     Dosage: STARTED 5MG DAILY IN 02/2006. INCREASED TO 10MG DAILY IN 03/2006.
     Dates: start: 20060301, end: 20080101
  2. ZYPREXA [Concomitant]

REACTIONS (1)
  - DYSTONIA [None]
